FAERS Safety Report 22654678 (Version 1)
Quarter: 2023Q2

REPORT INFORMATION
  Report Type: Spontaneous
  Country: ES (occurrence: ES)
  Receive Date: 20230629
  Receipt Date: 20230629
  Transmission Date: 20230721
  Serious: Yes (Other)
  Sender: FDA-Public Use
  Company Number: None

PATIENT
  Age: 64 Year
  Sex: Female
  Weight: 60 kg

DRUGS (8)
  1. OZEMPIC [Suspect]
     Active Substance: SEMAGLUTIDE
     Indication: Weight control
     Dosage: 1 MG, QW
     Route: 058
     Dates: start: 20230101
  2. ZINC OXIDE [Concomitant]
     Active Substance: ZINC OXIDE
     Indication: Raynaud^s phenomenon
     Dosage: 1 APPLICATION AT NIGHT
     Route: 061
     Dates: start: 20210413
  3. MINOXIDIL [Concomitant]
     Active Substance: MINOXIDIL
     Indication: Androgenetic alopecia
     Dosage: 1 MG, QD
     Route: 048
     Dates: start: 20210413
  4. ALDACTONE [Concomitant]
     Active Substance: SPIRONOLACTONE
     Indication: Androgenetic alopecia
     Dosage: 100 MG, QD
     Route: 048
  5. DUTASTERIDE [Concomitant]
     Active Substance: DUTASTERIDE
     Indication: Androgenetic alopecia
     Dosage: 0.5 MG, QOD
     Route: 048
     Dates: start: 20210413
  6. LEVOTHYROXINE SODIUM [Concomitant]
     Active Substance: LEVOTHYROXINE SODIUM
     Dosage: 37.5 ?G, QD
     Route: 048
     Dates: start: 20230130
  7. LEVOTHYROXINE SODIUM [Concomitant]
     Active Substance: LEVOTHYROXINE SODIUM
     Indication: Hypothyroidism
     Dosage: 50 ?G, QD
     Route: 048
     Dates: start: 20190731, end: 20230130
  8. CAPSAICIN [Concomitant]
     Active Substance: CAPSAICIN
     Indication: Osteoarthritis
     Dosage: UNK
     Route: 061
     Dates: start: 20210120

REACTIONS (3)
  - Xerophthalmia [Not Recovered/Not Resolved]
  - Dry mouth [Not Recovered/Not Resolved]
  - Product use in unapproved indication [Unknown]

NARRATIVE: CASE EVENT DATE: 20230101
